FAERS Safety Report 10072873 (Version 2)
Quarter: 2014Q2

REPORT INFORMATION
  Report Type: Spontaneous
  Country: US (occurrence: US)
  Receive Date: 20140411
  Receipt Date: 20140506
  Transmission Date: 20141212
  Serious: No
  Sender: FDA-Public Use
  Company Number: US-PFIZER INC-2014102373

PATIENT
  Age: 9 Year
  Sex: Female

DRUGS (1)
  1. QUILLIVANT XR [Suspect]
     Indication: ATTENTION DEFICIT/HYPERACTIVITY DISORDER
     Dosage: 6 ML, 1X/DAY
     Route: 048
     Dates: start: 20140312, end: 2014

REACTIONS (2)
  - Drug ineffective [Unknown]
  - Feeling jittery [Recovered/Resolved]
